FAERS Safety Report 6368098-1 (Version None)
Quarter: 2009Q3

REPORT INFORMATION
  Report Type: 
  Country: None (occurrence: None)
  Receive Date: 20090922
  Receipt Date: 20090911
  Transmission Date: 20100115
  Serious: No
  Sender: FDA-Public Use
  Company Number: PHHY2009JP24901

PATIENT
  Sex: Male

DRUGS (4)
  1. TASIGNA [Suspect]
     Indication: CHRONIC MYELOID LEUKAEMIA
     Dosage: 400 MG DAILY
     Route: 048
     Dates: start: 20090416, end: 20090527
  2. TASIGNA [Suspect]
     Dosage: 800 MG DAILY
     Route: 048
     Dates: start: 20090528
  3. PELEX [Concomitant]
     Dosage: UNK
     Route: 048
     Dates: start: 20090430, end: 20090506
  4. MUCODYNE [Concomitant]
     Dosage: UNK
     Route: 048
     Dates: start: 20090430, end: 20090506

REACTIONS (4)
  - BLOOD BILIRUBIN INCREASED [None]
  - INCORRECT DOSE ADMINISTERED [None]
  - PLATELET COUNT DECREASED [None]
  - WHITE BLOOD CELL COUNT DECREASED [None]
